FAERS Safety Report 23623106 (Version 1)
Quarter: 2024Q1

REPORT INFORMATION
  Report Type: Report from Study
  Country: CZ (occurrence: CZ)
  Receive Date: 20240312
  Receipt Date: 20240312
  Transmission Date: 20240409
  Serious: Yes (Other)
  Sender: FDA-Public Use
  Company Number: CZ-ABBVIE-5675066

PATIENT
  Sex: Female

DRUGS (1)
  1. RINVOQ [Suspect]
     Active Substance: UPADACITINIB
     Indication: Crohn^s disease
     Route: 048

REACTIONS (6)
  - Mastitis [Not Recovered/Not Resolved]
  - Viral infection [Unknown]
  - Purulent discharge [Not Recovered/Not Resolved]
  - Scarlet fever [Unknown]
  - Fatigue [Unknown]
  - Night sweats [Unknown]
